FAERS Safety Report 10466615 (Version 1)
Quarter: 2014Q3

REPORT INFORMATION
  Report Type: Spontaneous
  Country: US (occurrence: None)
  Receive Date: 20140919
  Receipt Date: 20140919
  Transmission Date: 20150326
  Serious: Yes (Other)
  Sender: FDA-Public Use
  Company Number: None

PATIENT
  Age: 75 Year
  Sex: Female
  Weight: 72.12 kg

DRUGS (2)
  1. LISINOPRIL 20 MG ACCORD [Suspect]
     Active Substance: LISINOPRIL
     Dosage: 1 PER DAY ONCE DAILY TAKEN BY MOUTH
     Route: 048
  2. LISINOPRIL 20 MG ACCORD [Suspect]
     Active Substance: LISINOPRIL
     Indication: HYPERTENSION
     Dosage: 1 PER DAY ONCE DAILY TAKEN BY MOUTH
     Route: 048

REACTIONS (5)
  - Hyperhidrosis [None]
  - Product substitution issue [None]
  - Dysgeusia [None]
  - Heart rate increased [None]
  - Product quality issue [None]

NARRATIVE: CASE EVENT DATE: 20140903
